FAERS Safety Report 8707256 (Version 4)
Quarter: 2013Q4

REPORT INFORMATION
  Report Type: Spontaneous
  Country: US (occurrence: US)
  Receive Date: 20120803
  Receipt Date: 20131101
  Transmission Date: 20140711
  Serious: No
  Sender: FDA-Public Use
  Company Number: US-009507513-1207USA002785

PATIENT
  Age: 45 Year
  Sex: Male

DRUGS (4)
  1. VICTRELIS [Suspect]
     Dosage: 4 DF, TID
     Route: 048
     Dates: start: 20120606, end: 20120704
  2. REBETOL [Suspect]
     Dosage: 1200 MG, QD
     Route: 048
     Dates: start: 20120609, end: 20120627
  3. PEGASYS [Suspect]
     Dosage: 180 MCG/ML, UNK
     Dates: start: 20120609, end: 20120627
  4. FUROSEMIDE [Suspect]
     Dosage: 20 MG, UNK
     Dates: start: 201204

REACTIONS (4)
  - Dysstasia [Unknown]
  - Epistaxis [Unknown]
  - Anaemia [Unknown]
  - Influenza like illness [Unknown]
